FAERS Safety Report 10166043 (Version 2)
Quarter: 2014Q2

REPORT INFORMATION
  Report Type: Report from Study
  Country: JP (occurrence: JP)
  Receive Date: 20140511
  Receipt Date: 20140511
  Transmission Date: 20141212
  Serious: Yes (Other)
  Sender: FDA-Public Use
  Company Number: JP-009507513-1402JPN002953

PATIENT
  Age: 66 Year
  Sex: Female

DRUGS (28)
  1. FOSAPREPITANT DIMEGLUMINE [Suspect]
     Indication: PROPHYLAXIS OF NAUSEA AND VOMITING
     Dosage: 150 MG, QD
     Route: 041
     Dates: start: 20130924, end: 20130924
  2. FOSAPREPITANT DIMEGLUMINE [Suspect]
     Dosage: 150 MG, QD
     Route: 041
     Dates: start: 20131022, end: 20131022
  3. FOSAPREPITANT DIMEGLUMINE [Suspect]
     Dosage: 150 MG, QD
     Route: 041
     Dates: start: 20131119, end: 20131119
  4. FOSAPREPITANT DIMEGLUMINE [Suspect]
     Dosage: 150 MG, QD
     Route: 041
     Dates: start: 20131210, end: 20131210
  5. EPIRUBICIN HYDROCHLORIDE [Suspect]
     Indication: BREAST CANCER
     Dosage: DAILY DOSE: 150 MG
     Route: 042
     Dates: start: 20130924, end: 20130924
  6. EPIRUBICIN HYDROCHLORIDE [Suspect]
     Dosage: DAILY DOSE: 120 MG
     Route: 042
     Dates: start: 20131022, end: 20131022
  7. EPIRUBICIN HYDROCHLORIDE [Suspect]
     Dosage: DAILY DOSE: 120 MG
     Route: 042
     Dates: start: 20131119, end: 20131119
  8. EPIRUBICIN HYDROCHLORIDE [Suspect]
     Dosage: DAILY DOSE: 120 MG
     Route: 042
     Dates: start: 20131210, end: 20131210
  9. ENDOXAN [Suspect]
     Indication: BREAST CANCER
     Dosage: DAILY DOSE: 750 MG
     Route: 042
     Dates: start: 20130924, end: 20130924
  10. ENDOXAN [Suspect]
     Dosage: DAILY DOSE: 750 MG
     Route: 042
     Dates: start: 20131022, end: 20131022
  11. ENDOXAN [Suspect]
     Dosage: DAILY DOSE: 750 MG
     Route: 042
     Dates: start: 20131119, end: 20131119
  12. ENDOXAN [Suspect]
     Dosage: DAILY DOSE: 750 MG
     Route: 042
     Dates: start: 20131210, end: 20131210
  13. FLUOROURACIL [Suspect]
     Indication: BREAST CANCER
     Dosage: DAILY DOSE: 750 MG
     Route: 042
     Dates: start: 20130924, end: 20130924
  14. FLUOROURACIL [Suspect]
     Dosage: DAILY DOSE: 750 MG
     Route: 042
     Dates: start: 20131022, end: 20131022
  15. FLUOROURACIL [Suspect]
     Dosage: DAILY DOSE: 750 MG
     Route: 042
     Dates: start: 20131119, end: 20131119
  16. FLUOROURACIL [Suspect]
     Dosage: DAILY DOSE: 750 MG
     Route: 042
     Dates: start: 20131210, end: 20131210
  17. DECADRON PHOSPHATE INJECTION [Concomitant]
     Dosage: UNK
     Dates: start: 20130924, end: 20130924
  18. DECADRON PHOSPHATE INJECTION [Concomitant]
     Dosage: UNK
     Dates: start: 20131022, end: 20131022
  19. DECADRON PHOSPHATE INJECTION [Concomitant]
     Dosage: UNK
     Dates: start: 20131119, end: 20131119
  20. DECADRON PHOSPHATE INJECTION [Concomitant]
     Dosage: UNK
     Dates: start: 20131210, end: 20131210
  21. ALOXI [Concomitant]
     Dosage: UNK
     Dates: start: 20130924, end: 20130924
  22. ALOXI [Concomitant]
     Dosage: UNK
     Dates: start: 20131022, end: 20131022
  23. ALOXI [Concomitant]
     Dosage: UNK
     Dates: start: 20131119, end: 20131119
  24. ALOXI [Concomitant]
     Dosage: UNK
     Dates: start: 20131210, end: 20131210
  25. DECADRON (DEXAMETHASONE) [Concomitant]
     Dosage: UNK
     Dates: start: 20130924, end: 20130924
  26. DECADRON (DEXAMETHASONE) [Concomitant]
     Dosage: UNK
     Dates: start: 20131023, end: 20131026
  27. DECADRON (DEXAMETHASONE) [Concomitant]
     Dosage: UNK
     Dates: start: 20131120, end: 20131123
  28. DECADRON (DEXAMETHASONE) [Concomitant]
     Dosage: UNK
     Dates: start: 20131210, end: 20131210

REACTIONS (3)
  - Agranulocytosis [Recovered/Resolved]
  - Arthritis [Recovered/Resolved]
  - Pyrexia [Unknown]
